FAERS Safety Report 19680641 (Version 1)
Quarter: 2021Q3

REPORT INFORMATION
  Report Type: Spontaneous
  Country: US (occurrence: US)
  Receive Date: 20210810
  Receipt Date: 20210810
  Transmission Date: 20211014
  Serious: No
  Sender: FDA-Public Use
  Company Number: None

PATIENT
  Age: 40 Year
  Sex: Male

DRUGS (1)
  1. REGEN?COV [Suspect]
     Active Substance: CASIRIVIMAB\IMDEVIMAB
     Indication: COVID-19
     Dosage: ?          OTHER FREQUENCY:ONCE;?
     Route: 041
     Dates: start: 20210807, end: 20210807

REACTIONS (6)
  - Infusion related reaction [None]
  - Pallor [None]
  - Anxiety [None]
  - Feeling abnormal [None]
  - Hyperhidrosis [None]
  - Hypotension [None]

NARRATIVE: CASE EVENT DATE: 20210807
